FAERS Safety Report 17638007 (Version 2)
Quarter: 2020Q2

REPORT INFORMATION
  Report Type: Spontaneous
  Country: US (occurrence: US)
  Receive Date: 20200407
  Receipt Date: 20200407
  Transmission Date: 20200713
  Serious: No
  Sender: FDA-Public Use
  Company Number: US-JNJFOC-20200316953

PATIENT
  Sex: Female
  Weight: 67.19 kg

DRUGS (1)
  1. WOMENS ROGAINE UNSCENTED [Suspect]
     Active Substance: MINOXIDIL
     Indication: ALOPECIA
     Dosage: DOSE:HALF A CAPFUL?LAST USED PRODUCT ON 08-MAR-2020.
     Route: 061

REACTIONS (1)
  - Drug ineffective [Unknown]
